FAERS Safety Report 14078272 (Version 4)
Quarter: 2018Q4

REPORT INFORMATION
  Report Type: Spontaneous
  Country: US (occurrence: US)
  Receive Date: 20171012
  Receipt Date: 20181212
  Transmission Date: 20190204
  Serious: No
  Sender: FDA-Public Use
  Company Number: US-PFIZER INC-2016387749

PATIENT
  Age: 14 Year
  Sex: Male
  Weight: 48.8 kg

DRUGS (2)
  1. GENOTROPIN [Suspect]
     Active Substance: SOMATROPIN
     Indication: GROWTH HORMONE DEFICIENCY
     Dosage: 2.4 MG, DAILY
     Dates: start: 20150227
  2. GENOTROPIN [Suspect]
     Active Substance: SOMATROPIN
     Indication: BLOOD GROWTH HORMONE ABNORMAL
     Dosage: 1.8 MG, DAILY
     Dates: start: 201710

REACTIONS (3)
  - Intentional product misuse [Not Recovered/Not Resolved]
  - Dysphagia [Unknown]
  - Thyroid pain [Unknown]

NARRATIVE: CASE EVENT DATE: 20170729
